FAERS Safety Report 5690734-3 (Version None)
Quarter: 2008Q2

REPORT INFORMATION
  Report Type: 
  Country: None (occurrence: None)
  Receive Date: 20080401
  Receipt Date: 20080319
  Transmission Date: 20081010
  Serious: Yes (Other)
  Sender: FDA-Public Use
  Company Number: FR-ELI_LILLY_AND_COMPANY-FR200712003258

PATIENT
  Age: 55 Year
  Sex: Female
  Weight: 82 kg

DRUGS (6)
  1. PROZAC [Suspect]
     Dosage: 20 MG, DAILY (1/D)
     Route: 048
     Dates: start: 20071208, end: 20071214
  2. AERIUS [Concomitant]
     Indication: TRACHEITIS
     Dosage: 5 MG, DAILY (1/D)
     Route: 048
     Dates: start: 20071113, end: 20071121
  3. TANAKAN [Concomitant]
     Indication: VERTIGO
     Dosage: 2 D/F, DAILY (1/D)
     Route: 048
     Dates: start: 20071113, end: 20071210
  4. PAXELADINE [Concomitant]
     Indication: TRACHEITIS
     Dosage: 3 D/F, DAILY (1/D)
     Route: 048
     Dates: start: 20071113, end: 20071121
  5. VASTAREL [Concomitant]
     Indication: VERTIGO
     Dosage: 2 D/F, DAILY (1/D)
     Route: 048
     Dates: start: 20071113, end: 20071210
  6. QUIETILINE [Concomitant]
     Dosage: 0.5 D/F, EACH EVENING
     Route: 048
     Dates: start: 20060101

REACTIONS (1)
  - ANGLE CLOSURE GLAUCOMA [None]
